FAERS Safety Report 15452630 (Version 4)
Quarter: 2019Q3

REPORT INFORMATION
  Report Type: Report from Study
  Country: MY (occurrence: MY)
  Receive Date: 20181001
  Receipt Date: 20190819
  Transmission Date: 20191004
  Serious: Yes (Death)
  Sender: FDA-Public Use
  Company Number: PHHY2018MY106765

PATIENT
  Age: 69 Year
  Sex: Male
  Weight: 85 kg

DRUGS (17)
  1. RANITIDINE. [Concomitant]
     Active Substance: RANITIDINE
     Indication: PRODUCT USED FOR UNKNOWN INDICATION
     Dosage: 150 OT, UNK
     Route: 048
     Dates: start: 20180729, end: 20180829
  2. DEXAMETHASONE. [Concomitant]
     Active Substance: DEXAMETHASONE
     Indication: PRODUCT USED FOR UNKNOWN INDICATION
     Dosage: 0.5 OT, UNK
     Route: 048
     Dates: start: 20180729, end: 20180803
  3. MORPHINE [Concomitant]
     Active Substance: MORPHINE
     Indication: PAIN
     Dosage: 2.5 UNK, UNK
     Route: 048
     Dates: start: 20180529, end: 20180603
  4. HUMULIN NOS [Concomitant]
     Active Substance: INSULIN HUMAN
     Indication: DIABETES MELLITUS
     Dosage: 32 OT, UNK
     Route: 058
     Dates: start: 19050708
  5. VOTRIENT [Suspect]
     Active Substance: PAZOPANIB HYDROCHLORIDE
     Dosage: 400 MG, QD ALTERNATE WITH 200 MG, QD
     Route: 048
     Dates: start: 20180621, end: 20180911
  6. THYMOL GARGLE [Concomitant]
     Indication: PRODUCT USED FOR UNKNOWN INDICATION
     Dosage: 1 OT, UNK
     Route: 065
     Dates: start: 20180729, end: 20180803
  7. SAXAGLIPTIN [Concomitant]
     Active Substance: SAXAGLIPTIN
     Indication: DIABETES MELLITUS
     Dosage: 5 OT, UNK
     Route: 048
     Dates: start: 20180620
  8. SERTLINE [Concomitant]
     Indication: MENTAL DISORDER
     Dosage: 25 OT, UNK
     Route: 048
     Dates: start: 20180516, end: 20180522
  9. BENADRYL [Concomitant]
     Active Substance: DIPHENHYDRAMINE HYDROCHLORIDE
     Indication: PRODUCT USED FOR UNKNOWN INDICATION
     Dosage: 10 OT, UNK
     Route: 048
     Dates: start: 20180729, end: 20180803
  10. PARACETAMOL [Concomitant]
     Active Substance: ACETAMINOPHEN
     Indication: PAIN
     Dosage: 1 OT, UNK
     Route: 048
     Dates: start: 20180603
  11. HUMULIN NOS [Concomitant]
     Active Substance: INSULIN HUMAN
     Dosage: 34 OT, UNK
     Route: 058
     Dates: start: 20180620
  12. LACTULOSE. [Concomitant]
     Active Substance: LACTULOSE
     Indication: CONSTIPATION
     Dosage: 15 OT, UNK
     Route: 048
     Dates: start: 20180603, end: 20180705
  13. TRAMAL [Concomitant]
     Active Substance: TRAMADOL
     Indication: PAIN
     Dosage: 50 OT, UNK
     Route: 048
     Dates: start: 20180603
  14. BISOLVON [Concomitant]
     Active Substance: BROMHEXINE HYDROCHLORIDE
     Indication: PRODUCT USED FOR UNKNOWN INDICATION
     Dosage: 8 OT, UNK
     Route: 048
     Dates: start: 20180729, end: 20180805
  15. VOTRIENT [Suspect]
     Active Substance: PAZOPANIB HYDROCHLORIDE
     Indication: RENAL CELL CARCINOMA
     Dosage: 400 MG, QD ALTERNATE WITH 200 MG, QD
     Route: 048
     Dates: start: 20180128, end: 20180526
  16. SERTRALINE [Concomitant]
     Active Substance: SERTRALINE HYDROCHLORIDE
     Indication: MENTAL DISORDER
     Dosage: 50 OT, UNK
     Route: 048
     Dates: start: 20180523, end: 20180604
  17. AUGMENTIN [Concomitant]
     Active Substance: AMOXICILLIN\CLAVULANATE POTASSIUM
     Indication: PRODUCT USED FOR UNKNOWN INDICATION
     Dosage: 625 OT, UNK
     Route: 048
     Dates: start: 20180729, end: 20180805

REACTIONS (2)
  - Asthenia [Unknown]
  - Death [Fatal]

NARRATIVE: CASE EVENT DATE: 20180901
